FAERS Safety Report 7864829-X (Version None)
Quarter: 2011Q4

REPORT INFORMATION
  Report Type: 
  Country: None (occurrence: None)
  Receive Date: 20111028
  Receipt Date: 20110106
  Transmission Date: 20120403
  Serious: No
  Sender: FDA-Public Use
  Company Number: US-GLAXOSMITHKLINE-A0877680A

PATIENT
  Age: 84 Year
  Sex: Male

DRUGS (25)
  1. ADVAIR DISKUS 100/50 [Suspect]
     Indication: ASTHMA
     Dosage: 1PUFF TWICE PER DAY
     Route: 055
     Dates: start: 20080101
  2. COZAAR [Concomitant]
  3. METROGEL [Concomitant]
  4. CENTRUM SILVER [Concomitant]
  5. FOLIC ACID [Concomitant]
  6. FLOVENT [Suspect]
     Indication: ASTHMA
     Dosage: 1PUFF TWICE PER DAY
     Route: 055
     Dates: start: 20100601
  7. ZEASORB [Concomitant]
  8. UNKNOWN MEDICATION [Concomitant]
  9. VITAMIN-MINERAL COMPOUND TAB [Concomitant]
  10. UNKNOWN MEDICATION [Concomitant]
  11. POTASSIUM [Concomitant]
  12. PROVENTIL [Concomitant]
  13. VITAMIN D [Concomitant]
  14. ASPIRIN [Concomitant]
  15. HYDROCHLOROTHIAZIDE [Concomitant]
  16. MEPROBAMATE [Concomitant]
  17. RHINOCORT [Concomitant]
  18. CALCIUM CITRATE [Concomitant]
  19. THERA TEARS [Concomitant]
  20. GLUCOSAMINE + CHONDROITIN [Concomitant]
  21. ALEVE [Concomitant]
  22. ZOCOR [Concomitant]
  23. OMEPRAZOLE [Concomitant]
  24. SAW PALMETTO [Concomitant]
  25. PRAMOSONE [Concomitant]

REACTIONS (3)
  - DYSPNOEA [None]
  - EXERCISE TOLERANCE DECREASED [None]
  - DYSPHONIA [None]
